FAERS Safety Report 13395657 (Version 1)
Quarter: 2017Q1

REPORT INFORMATION
  Report Type: Spontaneous
  Country: US (occurrence: US)
  Receive Date: 20170331
  Receipt Date: 20170331
  Transmission Date: 20170429
  Serious: Yes (Disabling, Other)
  Sender: FDA-Public Use
  Company Number: None

PATIENT
  Age: 36 Year
  Sex: Male
  Weight: 83.25 kg

DRUGS (4)
  1. TESTOSTERONE. [Suspect]
     Active Substance: TESTOSTERONE
     Indication: BLOOD TESTOSTERONE DECREASED
     Dosage: 7 PELLETS 4-6 MONTHS SURGICALLY IMPLANTED INTO BUTTOCK?
     Dates: start: 20161220, end: 20170309
  2. SAW PALMETTO [Concomitant]
     Active Substance: SAW PALMETTO
  3. BIOTIN [Concomitant]
     Active Substance: BIOTIN
  4. MULTI VITAMIN [Concomitant]
     Active Substance: VITAMINS

REACTIONS (7)
  - Wound abscess [None]
  - Migration of implanted drug [None]
  - Implant site infection [None]
  - Complication of drug implant insertion [None]
  - Skin infection [None]
  - Impaired healing [None]
  - Discomfort [None]

NARRATIVE: CASE EVENT DATE: 20161220
